FAERS Safety Report 24814301 (Version 1)
Quarter: 2025Q1

REPORT INFORMATION
  Report Type: Spontaneous
  Country: US (occurrence: None)
  Receive Date: 20250106
  Receipt Date: 20250106
  Transmission Date: 20250408
  Serious: Yes (Other)
  Sender: FDA-CTU
  Company Number: None

PATIENT
  Age: 54 Year
  Sex: Female

DRUGS (2)
  1. BETASERON [Suspect]
     Active Substance: INTERFERON BETA-1B
  2. PHENYTOIN [Suspect]
     Active Substance: PHENYTOIN
     Indication: Multiple sclerosis
     Dosage: FREQUENCY : EVERY OTHER DAY;?

REACTIONS (1)
  - Seizure [None]
